FAERS Safety Report 9244453 (Version 1)
Quarter: 2013Q1

REPORT INFORMATION
  Report Type: Spontaneous
  Country: US (occurrence: None)
  Receive Date: 20121128
  Receipt Date: 20121128
  Transmission Date: 20140127
  Serious: Yes (Other)
  Sender: FDA-Public Use
  Company Number: 2012032607

PATIENT
  Age: 71 Year
  Sex: Male

DRUGS (1)
  1. ALBUMINAR [Suspect]
     Indication: HYPOVOLAEMIA
     Dates: start: 20120608, end: 20120608

REACTIONS (2)
  - Anaphylactic reaction [None]
  - Blood pressure decreased [None]
